FAERS Safety Report 8569165-4 (Version None)
Quarter: 2012Q3

REPORT INFORMATION
  Report Type: 
  Country: None (occurrence: None)
  Receive Date: 20120803
  Receipt Date: 20120316
  Transmission Date: 20120928
  Serious: No
  Sender: FDA-Public Use
  Company Number: US-ABBOTT-12P-163-0917726-00

PATIENT
  Sex: Male
  Weight: 113.5 kg

DRUGS (5)
  1. NIASPAN [Suspect]
     Indication: HIGH DENSITY LIPOPROTEIN DECREASED
     Dates: start: 20120307
  2. HYZAAR [Concomitant]
     Indication: HYPERTENSION
  3. XYZAL [Concomitant]
     Indication: SEASONAL ALLERGY
  4. NIASPAN [Suspect]
     Indication: HIGH DENSITY LIPOPROTEIN ABNORMAL
  5. UNKNOWN RESTLESS LEG MEDICINE [Concomitant]
     Indication: RESTLESS LEGS SYNDROME

REACTIONS (1)
  - PARAESTHESIA [None]
